FAERS Safety Report 8805037 (Version 1)
Quarter: 2012Q4

REPORT INFORMATION
  Report Type: Spontaneous
  Country: TR (occurrence: None)
  Receive Date: 20120917
  Receipt Date: 20120917
  Transmission Date: 20130627
  Serious: Yes (Hospitalization)
  Sender: FDA-Public Use
  Company Number: INT_00122_2012

PATIENT
  Age: 42 Year
  Sex: Male

DRUGS (1)
  1. CEFTRIAXONE [Suspect]
     Indication: PRODUCT USED FOR UNKNOWN INDICATION
     Dosage: (DF)

REACTIONS (6)
  - Acute myocardial infarction [None]
  - Acute coronary syndrome [None]
  - Coronary artery stenosis [None]
  - Arteriospasm coronary [None]
  - Kounis syndrome [None]
  - Drug hypersensitivity [None]
